FAERS Safety Report 25897622 (Version 3)
Quarter: 2025Q4

REPORT INFORMATION
  Report Type: Spontaneous
  Country: CN (occurrence: CN)
  Receive Date: 20251008
  Receipt Date: 20251113
  Transmission Date: 20260117
  Serious: Yes (Other)
  Sender: NOVARTIS
  Company Number: CN-002147023-NVSC2025CN151398

PATIENT
  Age: 50 Year
  Sex: Female

DRUGS (4)
  1. DIOVAN [Suspect]
     Active Substance: VALSARTAN
     Indication: Hypertension
     Dosage: UNK
     Route: 048
     Dates: start: 201610
  2. DIOVAN [Suspect]
     Active Substance: VALSARTAN
     Dosage: UNK
     Route: 048
  3. METOPROLOL SUCCINATE [Concomitant]
     Active Substance: METOPROLOL SUCCINATE
     Indication: Hypertension
     Dosage: UNK (EXTENDED RELEASE TABLETS)
     Route: 065
     Dates: start: 201610
  4. NIFEDIPINE [Concomitant]
     Active Substance: NIFEDIPINE
     Indication: Hypertension
     Dosage: UNK (CONTROLLED RELEASE TABLETS)
     Route: 065
     Dates: start: 201610

REACTIONS (8)
  - Blood pressure systolic increased [Recovering/Resolving]
  - Palpitations [Unknown]
  - Headache [Unknown]
  - Hypoaesthesia [Unknown]
  - Insomnia [Unknown]
  - Dyspnoea [Unknown]
  - Suspected product quality issue [Unknown]
  - Counterfeit product administered [Unknown]

NARRATIVE: CASE EVENT DATE: 20250101
